FAERS Safety Report 10162158 (Version 1)
Quarter: 2014Q2

REPORT INFORMATION
  Report Type: Spontaneous
  Country: US (occurrence: None)
  Receive Date: 20140507
  Receipt Date: 20140507
  Transmission Date: 20141212
  Serious: Yes (Hospitalization)
  Sender: FDA-Public Use
  Company Number: 20140253

PATIENT
  Age: 70 Year
  Sex: Female

DRUGS (3)
  1. VENOFER [Suspect]
     Indication: ORTHOPAEDIC PROCEDURE
     Dosage: 300 MG IN 250 ML NS
     Route: 042
     Dates: start: 20140410, end: 20140410
  2. VENOFER [Suspect]
     Indication: INFECTION PROPHYLAXIS
     Dosage: 300 MG IN 250 ML NS
     Route: 042
     Dates: start: 20140410, end: 20140410
  3. B12 (CYANOCOBALAMIN) [Concomitant]

REACTIONS (6)
  - Malaise [None]
  - Vertigo [None]
  - Off label use [None]
  - Nausea [None]
  - Vomiting [None]
  - Hypertension [None]
